FAERS Safety Report 6464746-6 (Version None)
Quarter: 2009Q4

REPORT INFORMATION
  Report Type: 
  Country: None (occurrence: None)
  Receive Date: 20091124
  Receipt Date: 20091112
  Transmission Date: 20100525
  Serious: Yes (Hospitalization)
  Sender: FDA-Public Use
  Company Number: 8054673

PATIENT
  Sex: Female

DRUGS (1)
  1. CIMZIA [Suspect]
     Dosage: SC
     Route: 058
     Dates: start: 20090605

REACTIONS (4)
  - CONDITION AGGRAVATED [None]
  - CROHN'S DISEASE [None]
  - DEVICE RELATED INFECTION [None]
  - STAPHYLOCOCCAL INFECTION [None]
